FAERS Safety Report 7310157-0 (Version None)
Quarter: 2011Q1

REPORT INFORMATION
  Report Type: 
  Country: None (occurrence: None)
  Receive Date: 20110224
  Receipt Date: 20110121
  Transmission Date: 20110831
  Serious: No
  Sender: FDA-Public Use
  Company Number: US-PFIZER INC-2007059333

PATIENT
  Sex: Female

DRUGS (2)
  1. CHANTIX [Suspect]
     Dosage: UNK
     Dates: start: 20060908
  2. CHANTIX [Suspect]
     Dosage: UNK
     Dates: start: 20101201

REACTIONS (1)
  - BLOOD PRESSURE INCREASED [None]
